FAERS Safety Report 9518212 (Version 2)
Quarter: 2013Q4

REPORT INFORMATION
  Report Type: Spontaneous
  Country: IT (occurrence: None)
  Receive Date: 20130910
  Receipt Date: 20131028
  Transmission Date: 20140711
  Serious: Yes (Other)
  Sender: FDA-Public Use
  Company Number: AUR-APL-2013-07373

PATIENT
  Age: 66 Year
  Sex: Female

DRUGS (7)
  1. IRBESARTAN [Suspect]
     Indication: PRODUCT USED FOR UNKNOWN INDICATION
     Route: 048
     Dates: start: 20130731, end: 20130731
  2. ATENOLOL [Suspect]
     Indication: PRODUCT USED FOR UNKNOWN INDICATION
     Route: 048
     Dates: start: 20120801, end: 20130731
  3. EUTIROX [Concomitant]
  4. CARDIOASPIRIN [Concomitant]
  5. ATORVASTATIN [Concomitant]
  6. PANTOPRAZOLE [Concomitant]
  7. PARACETAMOL/ TRAMADOL(PARACETAMOL W/TRAMADOL) [Concomitant]

REACTIONS (3)
  - Bradycardia [None]
  - Presyncope [None]
  - Heart rate decreased [None]
